FAERS Safety Report 7460736-5 (Version None)
Quarter: 2011Q2

REPORT INFORMATION
  Report Type: 
  Country: None (occurrence: None)
  Receive Date: 20110505
  Receipt Date: 20110428
  Transmission Date: 20111010
  Serious: Yes (Hospitalization)
  Sender: FDA-Public Use
  Company Number: FR-PFIZER INC-FR-WYE-G00834908

PATIENT
  Age: 75 Year
  Sex: Female

DRUGS (9)
  1. NOVATREX [Suspect]
     Indication: RHEUMATOID ARTHRITIS
     Dosage: UNK
     Route: 048
     Dates: end: 20071029
  2. MEDIATENSYL [Concomitant]
     Route: 065
  3. ACTONEL [Concomitant]
     Route: 048
  4. SALAZOPYRINE [Suspect]
     Dosage: UNK
     Route: 048
     Dates: end: 20071029
  5. FUROSEMIDE [Concomitant]
     Route: 065
  6. ZALDIAR [Suspect]
     Indication: RHEUMATOID ARTHRITIS
     Dosage: UNK
     Route: 048
     Dates: start: 20071025, end: 20071029
  7. CORTANCYL [Concomitant]
     Route: 065
  8. PREVISCAN [Concomitant]
     Route: 065
  9. OGAST [Concomitant]
     Route: 065

REACTIONS (8)
  - RASH MACULO-PAPULAR [None]
  - CONJUNCTIVAL HAEMORRHAGE [None]
  - AGRANULOCYTOSIS [None]
  - CONJUNCTIVITIS [None]
  - GRANULOCYTES MATURATION ARREST [None]
  - PYREXIA [None]
  - RASH PRURITIC [None]
  - PURPURA [None]
